FAERS Safety Report 6177987-2 (Version None)
Quarter: 2009Q2

REPORT INFORMATION
  Report Type: 
  Country: None (occurrence: None)
  Receive Date: 20090504
  Receipt Date: 20090422
  Transmission Date: 20091009
  Serious: Yes (Hospitalization)
  Sender: FDA-Public Use
  Company Number: US-AMGEN-KDL338139

PATIENT
  Sex: Female
  Weight: 82 kg

DRUGS (20)
  1. EPOGEN [Suspect]
     Indication: DIALYSIS
     Route: 042
  2. PROTAMINE SULFATE [Concomitant]
  3. SENSIPAR [Concomitant]
     Indication: HYPERPARATHYROIDISM SECONDARY
     Route: 048
     Dates: start: 20060609
  4. NOVOLIN R [Concomitant]
     Dates: start: 20080514
  5. LANTUS [Concomitant]
     Dates: start: 20080514
  6. NEURONTIN [Concomitant]
     Route: 048
     Dates: start: 20071219
  7. NEPHROCAPS [Concomitant]
     Route: 048
     Dates: start: 20071219
  8. LEXAPRO [Concomitant]
     Route: 048
     Dates: start: 20071219
  9. COUMADIN [Concomitant]
     Route: 048
     Dates: start: 20071219
  10. BENTYL [Concomitant]
     Route: 048
     Dates: start: 20071219
  11. AVANDIA [Concomitant]
     Route: 048
     Dates: start: 20070214
  12. PROTONIX [Concomitant]
     Route: 048
     Dates: start: 20071219
  13. OMEPRAZOLE [Concomitant]
     Route: 048
     Dates: start: 20071219
  14. KAYEXALATE [Concomitant]
     Dates: start: 20050615
  15. RENAGEL [Concomitant]
     Route: 048
  16. SOLU-CORTEF [Concomitant]
  17. ACETAMINOPHEN [Concomitant]
  18. NITROGLYCERIN [Concomitant]
  19. DIPHENHYDRAMINE HCL [Concomitant]
  20. DIMENHYDRINATE [Concomitant]

REACTIONS (7)
  - BLOOD GLUCOSE INCREASED [None]
  - CHEST PAIN [None]
  - DIALYSIS DEVICE COMPLICATION [None]
  - DYSPNOEA [None]
  - NO THERAPEUTIC RESPONSE [None]
  - STAPHYLOCOCCAL INFECTION [None]
  - THERAPEUTIC RESPONSE DECREASED [None]
